FAERS Safety Report 21130021 (Version 8)
Quarter: 2022Q3

REPORT INFORMATION
  Report Type: Report from Study
  Country: TH (occurrence: TH)
  Receive Date: 20220726
  Receipt Date: 20220917
  Transmission Date: 20221027
  Serious: Yes (Hospitalization)
  Sender: FDA-Public Use
  Company Number: TH-JNJFOC-20220745786

PATIENT
  Age: 40 Year
  Sex: Female

DRUGS (6)
  1. SELEXIPAG [Suspect]
     Active Substance: SELEXIPAG
     Indication: Pulmonary arterial hypertension
     Route: 048
     Dates: start: 20220720
  2. SELEXIPAG [Suspect]
     Active Substance: SELEXIPAG
     Route: 048
     Dates: start: 20220820
  3. SELEXIPAG [Suspect]
     Active Substance: SELEXIPAG
     Dosage: 400 UG AFTER DINNER AND 200 UG AFTER BREAKFAST
     Route: 048
  4. ONDEM [Concomitant]
  5. WARFARIN [Concomitant]
     Active Substance: WARFARIN
     Dates: start: 2017
  6. VIAGRA [Concomitant]
     Active Substance: SILDENAFIL CITRATE
     Dates: start: 2017

REACTIONS (13)
  - Nausea [Recovered/Resolved]
  - Vomiting [Recovering/Resolving]
  - Headache [Recovering/Resolving]
  - Vertigo [Recovered/Resolved]
  - Presyncope [Recovered/Resolved]
  - Chest pain [Recovered/Resolved]
  - Dizziness [Not Recovered/Not Resolved]
  - Hypoaesthesia oral [Recovered/Resolved]
  - Abdominal pain upper [Recovering/Resolving]
  - Chromaturia [Not Recovered/Not Resolved]
  - Liver function test increased [Not Recovered/Not Resolved]
  - Yellow skin [Not Recovered/Not Resolved]
  - Ocular icterus [Not Recovered/Not Resolved]

NARRATIVE: CASE EVENT DATE: 20220720
